FAERS Safety Report 6565253-2 (Version None)
Quarter: 2010Q1

REPORT INFORMATION
  Report Type: 
  Country: None (occurrence: None)
  Receive Date: 20100201
  Receipt Date: 20100126
  Transmission Date: 20100710
  Serious: Yes (Death, Hospitalization, Other)
  Sender: FDA-Public Use
  Company Number: US-ELI_LILLY_AND_COMPANY-US201001003526

PATIENT
  Sex: Male
  Weight: 71.202 kg

DRUGS (10)
  1. GEMZAR [Suspect]
     Indication: ADENOCARCINOMA PANCREAS
     Dosage: UNK, UNK
     Dates: start: 20090223, end: 20090420
  2. TARCEVA [Concomitant]
     Indication: ADENOCARCINOMA PANCREAS
     Dates: end: 20090401
  3. DEXAMETHASONE [Concomitant]
     Dates: start: 20090226, end: 20090420
  4. ZOFRAN [Concomitant]
     Dates: start: 20090223
  5. ANZEMET [Concomitant]
     Dosage: 100 MG, OTHER
     Route: 042
     Dates: start: 20090223, end: 20090402
  6. MAGNESIUM SULFATE [Concomitant]
     Dosage: 2000 MG, DAILY (1/D)
     Route: 042
     Dates: start: 20090414, end: 20090421
  7. MORPHINE SULFATE [Concomitant]
     Dosage: 4 MG, DAILY (1/D)
     Route: 042
     Dates: start: 20090316, end: 20090316
  8. POTASSIUM CHLORIDE [Concomitant]
     Dosage: 20 MEQ, DAILY (1/D)
     Route: 042
     Dates: start: 20090421, end: 20090421
  9. GLYBURIDE [Concomitant]
  10. ABRAXANE [Concomitant]

REACTIONS (6)
  - ADENOCARCINOMA PANCREAS [None]
  - ANASTOMOTIC ULCER [None]
  - BLOOD GLUCOSE INCREASED [None]
  - DECREASED APPETITE [None]
  - HYPOGLYCAEMIA [None]
  - MALIGNANT NEOPLASM PROGRESSION [None]
